FAERS Safety Report 7959039-1 (Version None)
Quarter: 2011Q4

REPORT INFORMATION
  Report Type: 
  Country: None (occurrence: None)
  Receive Date: 20111206
  Receipt Date: 20111201
  Transmission Date: 20120403
  Serious: Yes (Other)
  Sender: FDA-Public Use
  Company Number: US-PFIZER INC-2011294477

PATIENT

DRUGS (1)
  1. LIPITOR [Suspect]
     Dosage: UNK

REACTIONS (2)
  - TONGUE NEOPLASM MALIGNANT STAGE UNSPECIFIED [None]
  - LIP AND/OR ORAL CAVITY CANCER [None]
